FAERS Safety Report 21570308 (Version 3)
Quarter: 2022Q4

REPORT INFORMATION
  Report Type: Spontaneous
  Country: US (occurrence: US)
  Receive Date: 20221109
  Receipt Date: 20221206
  Transmission Date: 20230112
  Serious: No
  Sender: FDA-Public Use
  Company Number: US-PFIZER INC-202200773005

PATIENT
  Age: 5 Year
  Sex: Male
  Weight: 10.43 kg

DRUGS (3)
  1. GENOTROPIN [Suspect]
     Active Substance: SOMATROPIN
     Indication: Gilbert^s syndrome
     Dosage: 0.3 MG, DAILY
     Dates: start: 202206
  2. GENOTROPIN [Suspect]
     Active Substance: SOMATROPIN
     Dosage: 0.4 MG, DAILY
     Route: 058
     Dates: start: 20221017
  3. GUAFENSIN [Concomitant]
     Indication: Attention deficit hyperactivity disorder
     Dosage: 0.5 MG (0.5MG NIGHTLY BY MOUTH)
     Route: 048
     Dates: start: 202209

REACTIONS (5)
  - Device use issue [Unknown]
  - Device breakage [Unknown]
  - Drug dose omission by device [Not Recovered/Not Resolved]
  - Product prescribing error [Unknown]
  - Off label use [Unknown]

NARRATIVE: CASE EVENT DATE: 20220601
